FAERS Safety Report 9788737 (Version 2)
Quarter: 2014Q1

REPORT INFORMATION
  Report Type: Spontaneous
  Country: US (occurrence: US)
  Receive Date: 20131230
  Receipt Date: 20140128
  Transmission Date: 20141002
  Serious: No
  Sender: FDA-Public Use
  Company Number: US-009507513-1312USA002201

PATIENT
  Age: 44 Year
  Sex: Male

DRUGS (2)
  1. PEGINTRON [Suspect]
     Indication: HEPATITIS C
     Dosage: REDIPEN
     Dates: start: 20071204, end: 20080104
  2. REBETOL [Suspect]
     Indication: HEPATITIS C
     Dosage: UNK
     Route: 048
     Dates: start: 20071204, end: 20080104

REACTIONS (5)
  - Abasia [Unknown]
  - Arthritis [Unknown]
  - Anaemia [Unknown]
  - Dyspnoea [Unknown]
  - Arthralgia [Unknown]
